FAERS Safety Report 9895709 (Version 1)
Quarter: 2014Q1

REPORT INFORMATION
  Report Type: Spontaneous
  Country: US (occurrence: US)
  Receive Date: 20140213
  Receipt Date: 20140213
  Transmission Date: 20141002
  Serious: No
  Sender: FDA-Public Use
  Company Number: US-BRISTOL-MYERS SQUIBB COMPANY-18971309

PATIENT
  Age: 56 Year
  Sex: Female
  Weight: 47 kg

DRUGS (7)
  1. ABATACEPT SUBQ INJECTION 125MG/ML [Suspect]
     Indication: RHEUMATOID ARTHRITIS
     Dosage: 1 DF = 125 MG/ML PFS (4 PACK)
     Route: 058
  2. METHOTREXATE [Concomitant]
     Dosage: INJ
  3. PAXIL [Concomitant]
  4. HYDROCODONE [Concomitant]
  5. HOMATROPINE [Concomitant]
     Dosage: TABS
  6. ZOLPIDEM [Concomitant]
  7. FOLIC ACID [Concomitant]
     Dosage: TAB

REACTIONS (2)
  - Oral herpes [Unknown]
  - Headache [Unknown]
